FAERS Safety Report 7000084-0 (Version None)
Quarter: 2010Q3

REPORT INFORMATION
  Report Type: 
  Country: None (occurrence: None)
  Receive Date: 20100920
  Receipt Date: 20100907
  Transmission Date: 20110219
  Serious: Yes (Hospitalization)
  Sender: FDA-Public Use
  Company Number: JP-ELI_LILLY_AND_COMPANY-JP201009001544

PATIENT
  Age: 61 Year
  Sex: Male
  Weight: 61.4 kg

DRUGS (5)
  1. PEMETREXED [Suspect]
     Indication: LUNG ADENOCARCINOMA STAGE III
     Dosage: 500 MG/M2, OTHER
     Route: 042
     Dates: start: 20100310, end: 20100716
  2. PEMETREXED [Suspect]
     Dosage: 450 MG/M2, OTHER
     Route: 042
     Dates: start: 20100812
  3. CISPLATIN [Concomitant]
     Indication: LUNG ADENOCARCINOMA STAGE III
     Dosage: 75 MG/M2, UNK
     Dates: start: 20100310, end: 20100716
  4. PANVITAN [Concomitant]
     Dosage: 1 G (CONTAINS 0.5MG FOLIC ACID), DAILY (1/D)
     Route: 048
     Dates: start: 20100309
  5. HYDROXOCOBALAMIN ACETATE [Concomitant]
     Dosage: 1 MG, EVERY 9 WEEKS
     Route: 030
     Dates: start: 20100309, end: 20100715

REACTIONS (1)
  - GASTROINTESTINAL DISORDER [None]
